FAERS Safety Report 14339631 (Version 4)
Quarter: 2018Q2

REPORT INFORMATION
  Report Type: Spontaneous
  Country: GB (occurrence: GB)
  Receive Date: 20171230
  Receipt Date: 20180505
  Transmission Date: 20180711
  Serious: Yes (Other)
  Sender: FDA-Public Use
  Company Number: GB-AUROBINDO-AUR-APL-2017-48435

PATIENT

DRUGS (4)
  1. LAMIVUDINE AND ZIDOVUDINE [Concomitant]
     Active Substance: LAMIVUDINE\ZIDOVUDINE
     Indication: PERINATAL HIV INFECTION
     Dosage: UNK
  2. LAMIVUDINE. [Concomitant]
     Active Substance: LAMIVUDINE
     Dosage: ()
  3. EFAVIRENZ FILM-COATED TABLET [Suspect]
     Active Substance: EFAVIRENZ
     Indication: PERINATAL HIV INFECTION
     Dosage: UNK
     Route: 048
  4. ZIDOVUDINE. [Concomitant]
     Active Substance: ZIDOVUDINE
     Dosage: ()

REACTIONS (14)
  - Hypercholesterolaemia [Unknown]
  - Disturbance in attention [Unknown]
  - Headache [Unknown]
  - Virologic failure [Unknown]
  - Psychotic disorder [Recovered/Resolved]
  - Mood altered [Unknown]
  - Cognitive disorder [Unknown]
  - Enuresis [Unknown]
  - Stevens-Johnson syndrome [Recovered/Resolved]
  - Sleep disorder [Unknown]
  - Gynaecomastia [Unknown]
  - Fatigue [Unknown]
  - HIV-associated neurocognitive disorder [Unknown]
  - Diplegia [Unknown]
